FAERS Safety Report 5443145-X (Version None)
Quarter: 2007Q3

REPORT INFORMATION
  Report Type: 
  Country: None (occurrence: None)
  Receive Date: 20070905
  Receipt Date: 20070904
  Transmission Date: 20080115
  Serious: Yes (Hospitalization, Disabling, Other)
  Sender: FDA-Public Use
  Company Number: US-PURDUE-USA_2007_0028872

PATIENT
  Sex: Male

DRUGS (2)
  1. OXYCONTIN [Suspect]
     Indication: PAIN
     Dosage: 960 MG, DAILY
     Dates: start: 19990101, end: 20070308
  2. OXYFAST CONCENTRATE 20 MG/ML [Concomitant]
     Indication: PAIN

REACTIONS (17)
  - ALCOHOLISM [None]
  - ANXIETY DISORDER [None]
  - CEREBRAL DISORDER [None]
  - CLUSTER HEADACHE [None]
  - CONSTIPATION [None]
  - CRYING [None]
  - DRUG DEPENDENCE [None]
  - DRUG WITHDRAWAL SYNDROME [None]
  - ENCEPHALOPATHY [None]
  - EUPHORIC MOOD [None]
  - HYPERTENSION [None]
  - IMPAIRED DRIVING ABILITY [None]
  - MAJOR DEPRESSION [None]
  - MALAISE [None]
  - MALNUTRITION [None]
  - ROAD TRAFFIC ACCIDENT [None]
  - SUICIDAL IDEATION [None]
